FAERS Safety Report 5005820-0 (Version None)
Quarter: 2006Q2

REPORT INFORMATION
  Report Type: 
  Country: None (occurrence: None)
  Receive Date: 20060517
  Receipt Date: 20060517
  Transmission Date: 20061013
  Serious: Yes (Hospitalization)
  Sender: FDA-Public Use
  Company Number: None

PATIENT
  Age: 83 Year
  Sex: Male

DRUGS (4)
  1. SPIRONOLACTONE [Suspect]
     Dosage: 50MG BID
     Dates: start: 19980501
  2. POTASSIUM CHLORIDE [Suspect]
     Indication: MINERAL SUPPLEMENTATION
     Dosage: 16MEQ QD
     Dates: start: 19960301, end: 20050304
  3. LOMOTIL [Concomitant]
  4. LISINOPRIL [Suspect]
     Indication: HYPERTENSION
     Dosage: 5 MG QD
     Dates: start: 19960301, end: 20050304

REACTIONS (3)
  - ASTHENIA [None]
  - DIZZINESS [None]
  - HYPERKALAEMIA [None]
